FAERS Safety Report 4387969-9 (Version None)
Quarter: 2004Q2

REPORT INFORMATION
  Report Type: 
  Country: None (occurrence: None)
  Receive Date: 20040607
  Receipt Date: 20030410
  Transmission Date: 20050107
  Serious: Yes (Other)
  Sender: FDA-Public Use
  Company Number: 331634

PATIENT
  Age: 16 Year
  Sex: Male
  Weight: 68 kg

DRUGS (1)
  1. ACCUTANE [Suspect]
     Indication: ACNE CYSTIC
     Dosage: ORAL
     Route: 048
     Dates: start: 20020415, end: 20030109

REACTIONS (9)
  - BREATH ODOUR [None]
  - COLITIS ULCERATIVE [None]
  - DEFAECATION URGENCY [None]
  - DIARRHOEA HAEMORRHAGIC [None]
  - ERUCTATION [None]
  - FLATULENCE [None]
  - PROCTITIS ULCERATIVE [None]
  - RECTAL HAEMORRHAGE [None]
  - RECTAL TENESMUS [None]
